FAERS Safety Report 6826120-X (Version None)
Quarter: 2010Q3

REPORT INFORMATION
  Report Type: 
  Country: None (occurrence: None)
  Receive Date: 20100709
  Receipt Date: 20100629
  Transmission Date: 20110219
  Serious: Yes (Death)
  Sender: FDA-Public Use
  Company Number: CA-ELI_LILLY_AND_COMPANY-CA201006007923

PATIENT
  Sex: Male
  Weight: 70.4 kg

DRUGS (10)
  1. PEMETREXED [Suspect]
     Indication: NON-SMALL CELL LUNG CANCER
     Dosage: 500 MG/M2, OTHER
     Route: 042
     Dates: start: 20100301, end: 20100517
  2. CISPLATIN [Suspect]
     Indication: NON-SMALL CELL LUNG CANCER
     Dosage: 75 MG/M2, OTHER
     Route: 042
     Dates: start: 20100301, end: 20100517
  3. PLACEBO [Suspect]
     Indication: NON-SMALL CELL LUNG CANCER
     Dates: start: 20100607
  4. BEST SUPPORTIVE CARE [Suspect]
     Indication: NON-SMALL CELL LUNG CANCER
     Dates: start: 20100607
  5. FOLIC ACID [Concomitant]
     Indication: PROPHYLAXIS
     Dates: start: 20100223, end: 20100611
  6. VITAMIN B-12 [Concomitant]
     Indication: PROPHYLAXIS
     Dates: start: 20100222, end: 20100506
  7. DEXAMETHASONE [Concomitant]
     Indication: PROPHYLAXIS
     Dates: start: 20100228, end: 20100608
  8. ZANTAC [Concomitant]
     Indication: PROPHYLAXIS
     Dates: start: 20100223
  9. DILTIAZEM [Concomitant]
     Indication: HEART RATE INCREASED
     Dates: start: 20100505
  10. METOPROLOL [Concomitant]
     Indication: HYPERTENSION
     Dates: start: 20100427

REACTIONS (1)
  - SUDDEN DEATH [None]
